FAERS Safety Report 6145761-9 (Version None)
Quarter: 2009Q2

REPORT INFORMATION
  Report Type: 
  Country: None (occurrence: None)
  Receive Date: 20090406
  Receipt Date: 20090406
  Transmission Date: 20091009
  Serious: Yes (Hospitalization)
  Sender: FDA-Public Use
  Company Number: None

PATIENT
  Sex: Female
  Weight: 44 kg

DRUGS (12)
  1. KUVAN [Suspect]
     Indication: PHENYLKETONURIA
     Dosage: 9 TABLETS DAILY PO
     Route: 048
     Dates: start: 20080318
  2. BENADRYL [Concomitant]
  3. PHENYL FREE 2 HP PKU FORMULA [Concomitant]
  4. ZOLOFT [Concomitant]
  5. PROTONIX [Concomitant]
  6. CENTRUM MULTIVITAMIN [Concomitant]
  7. YAZ [Concomitant]
  8. ATPRAZOLAM [Concomitant]
  9. VENTOLIN DS [Concomitant]
  10. SINGULAIR [Concomitant]
  11. TOPAMAX [Concomitant]
  12. IMITREX [Concomitant]

REACTIONS (10)
  - DIARRHOEA [None]
  - DIZZINESS [None]
  - HEADACHE [None]
  - LYMPHADENITIS [None]
  - MUSCULOSKELETAL STIFFNESS [None]
  - NECK PAIN [None]
  - PAIN [None]
  - PHOTOPHOBIA [None]
  - PYREXIA [None]
  - VOMITING [None]
